FAERS Safety Report 16014773 (Version 1)
Quarter: 2019Q1

REPORT INFORMATION
  Report Type: Spontaneous
  Country: US (occurrence: US)
  Receive Date: 20190227
  Receipt Date: 20190227
  Transmission Date: 20190418
  Serious: Yes (Death, Other)
  Sender: FDA-Public Use
  Company Number: PHEH2019US008729

PATIENT
  Sex: Female

DRUGS (1)
  1. TASIGNA [Suspect]
     Active Substance: NILOTINIB
     Indication: CHRONIC MYELOID LEUKAEMIA
     Dosage: UNK UNK, BID
     Route: 048
     Dates: start: 200803

REACTIONS (16)
  - Neuropathy peripheral [Unknown]
  - Osteoarthritis [Unknown]
  - Cardiac murmur [Unknown]
  - Urinary tract infection [Unknown]
  - Coronary artery disease [Unknown]
  - Lumbar spinal stenosis [Unknown]
  - Dizziness [Unknown]
  - Hypotension [Unknown]
  - Arteriosclerosis [Unknown]
  - Back pain [Unknown]
  - Death [Fatal]
  - Macular degeneration [Unknown]
  - Anaemia [Unknown]
  - Peripheral vascular disorder [Unknown]
  - Constipation [Unknown]
  - Aortic valve stenosis [Unknown]
